FAERS Safety Report 9204064 (Version 2)
Quarter: 2014Q4

REPORT INFORMATION
  Report Type: Spontaneous
  Country: US (occurrence: None)
  Receive Date: 20130329
  Receipt Date: 20141103
  Transmission Date: 20150529
  Serious: Yes (Hospitalization, Other)
  Sender: FDA-Public Use
  Company Number: JPI-P-030896

PATIENT
  Age: 55 Year
  Sex: Female

DRUGS (2)
  1. XYREM [Suspect]
     Active Substance: SODIUM OXYBATE
     Indication: CATAPLEXY
     Dosage: 6 GM (3 GM, 2 IN 1 D) ,ORAL
     Route: 048
     Dates: start: 20081226
  2. XYREM [Suspect]
     Active Substance: SODIUM OXYBATE
     Indication: NARCOLEPSY
     Dosage: 6 GM (3 GM, 2 IN 1 D) ,ORAL
     Route: 048
     Dates: start: 20081226

REACTIONS (2)
  - Investigation [None]
  - Depression [None]
